FAERS Safety Report 16160492 (Version 1)
Quarter: 2019Q2

REPORT INFORMATION
  Report Type: Spontaneous
  Country: FR (occurrence: FR)
  Receive Date: 20190405
  Receipt Date: 20190405
  Transmission Date: 20190711
  Serious: Yes (Other)
  Sender: FDA-Public Use
  Company Number: FR-PROVELL PHARMACEUTICALS-2065337

PATIENT
  Age: 73 Year
  Sex: Female

DRUGS (1)
  1. EUTHYROX [Suspect]
     Active Substance: LEVOTHYROXINE SODIUM
     Indication: POST PROCEDURAL HYPOTHYROIDISM
     Dates: start: 20170520

REACTIONS (16)
  - Suicidal ideation [Recovering/Resolving]
  - Fatigue [Recovering/Resolving]
  - Somnolence [Recovering/Resolving]
  - Blood triglycerides increased [Recovering/Resolving]
  - Lipase increased [Recovering/Resolving]
  - Depression [Recovering/Resolving]
  - Dyspnoea exertional [Recovering/Resolving]
  - Blood thyroid stimulating hormone increased [Recovering/Resolving]
  - Asthenia [Recovering/Resolving]
  - Anxiety [Recovering/Resolving]
  - Haematochezia [Recovering/Resolving]
  - Alopecia [Recovering/Resolving]
  - Low density lipoprotein increased [Recovering/Resolving]
  - Negative thoughts [Recovering/Resolving]
  - Impaired driving ability [Recovering/Resolving]
  - Loss of personal independence in daily activities [Recovering/Resolving]

NARRATIVE: CASE EVENT DATE: 201705
